FAERS Safety Report 8415973-X (Version None)
Quarter: 2012Q2

REPORT INFORMATION
  Report Type: 
  Country: None (occurrence: None)
  Receive Date: 20120606
  Receipt Date: 20120601
  Transmission Date: 20120825
  Serious: Yes (Other)
  Sender: FDA-Public Use
  Company Number: US-PFIZER INC-2012132658

PATIENT
  Sex: Male

DRUGS (2)
  1. LYRICA [Suspect]
     Indication: DIABETIC NEUROPATHY
     Dosage: 50 MG, 2X/DAY
     Route: 048
     Dates: start: 20120515, end: 20120501
  2. LYRICA [Suspect]
     Dosage: 75MG IN THE MORNING AND 50MG IN THE EVENING, UNK
     Route: 048
     Dates: start: 20120501, end: 20120522

REACTIONS (5)
  - RASH [None]
  - SWELLING FACE [None]
  - OEDEMA PERIPHERAL [None]
  - PAIN [None]
  - RENAL FAILURE [None]
